FAERS Safety Report 17223959 (Version 1)
Quarter: 2020Q1

REPORT INFORMATION
  Report Type: Spontaneous
  Country: US (occurrence: US)
  Receive Date: 20200102
  Receipt Date: 20200102
  Transmission Date: 20200409
  Serious: No
  Sender: FDA-Public Use
  Company Number: US-MYLANLABS-2019M1123273

PATIENT
  Age: 82 Year
  Sex: Female
  Weight: 45 kg

DRUGS (5)
  1. CLONIDINE. [Suspect]
     Active Substance: CLONIDINE
     Indication: BLOOD PRESSURE MEASUREMENT
     Dosage: ^ONCE A WEEK^
     Route: 003
  2. CLONIDINE TRANSDERMAL SYSTEM [Suspect]
     Active Substance: CLONIDINE
     Indication: BLOOD PRESSURE MEASUREMENT
     Dosage: ^ ONCE A WEEK^
     Route: 062
  3. LISINOPRIL. [Concomitant]
     Active Substance: LISINOPRIL
     Dosage: UNK
  4. FUROSEMIDE. [Concomitant]
     Active Substance: FUROSEMIDE
     Dosage: UNK
  5. ATENOLOL. [Concomitant]
     Active Substance: ATENOLOL
     Dosage: UNK

REACTIONS (6)
  - Application site hypersensitivity [Not Recovered/Not Resolved]
  - Dermatitis [Not Recovered/Not Resolved]
  - Product adhesion issue [Unknown]
  - Pruritus [Not Recovered/Not Resolved]
  - Urticaria [Not Recovered/Not Resolved]
  - Product quality issue [Unknown]
